FAERS Safety Report 20526579 (Version 1)
Quarter: 2022Q1

REPORT INFORMATION
  Report Type: Spontaneous
  Country: US (occurrence: None)
  Receive Date: 20220226
  Receipt Date: 20220226
  Transmission Date: 20220423
  Serious: No
  Sender: FDA-Public Use
  Company Number: None

PATIENT
  Age: 62 Year
  Sex: Female
  Weight: 54 kg

DRUGS (3)
  1. HYDROCORTISONE\NEOMYCIN SULFATE\POLYMYXIN B [Suspect]
     Active Substance: HYDROCORTISONE\NEOMYCIN SULFATE\POLYMYXIN B
     Indication: Dry eye
     Dosage: OTHER QUANTITY : 2 DROP(S);?OTHER FREQUENCY : ONE TIME ONLY;?
     Route: 047
  2. ATENOLOL [Concomitant]
     Active Substance: ATENOLOL
  3. LISINOPRIL AND HYDROCHLOROTHIAZIDE [Concomitant]
     Active Substance: HYDROCHLOROTHIAZIDE\LISINOPRIL

REACTIONS (2)
  - Incorrect route of product administration [None]
  - Wrong product administered [None]

NARRATIVE: CASE EVENT DATE: 20220226
